FAERS Safety Report 6903925-8 (Version None)
Quarter: 2010Q3

REPORT INFORMATION
  Report Type: 
  Country: None (occurrence: None)
  Receive Date: 20100804
  Receipt Date: 20090128
  Transmission Date: 20110219
  Serious: No
  Sender: FDA-Public Use
  Company Number: US-PFIZER INC-2008155237

PATIENT
  Sex: Female
  Weight: 61.224 kg

DRUGS (6)
  1. LYRICA [Suspect]
     Indication: FIBROMYALGIA
     Dosage: 75 MG, 2X/DAY
     Dates: start: 20081119
  2. CELEBREX [Concomitant]
  3. ZOLOFT [Concomitant]
  4. CHANTIX [Concomitant]
  5. MUCINEX [Concomitant]
  6. SEROQUEL [Concomitant]

REACTIONS (1)
  - BARBITURATES POSITIVE [None]
